FAERS Safety Report 22155122 (Version 1)
Quarter: 2023Q1

REPORT INFORMATION
  Report Type: Spontaneous
  Country: CH (occurrence: CH)
  Receive Date: 20230330
  Receipt Date: 20230330
  Transmission Date: 20230417
  Serious: Yes (Life-Threatening, Other)
  Sender: FDA-Public Use
  Company Number: CH-MYLANLABS-2023M1031248

PATIENT
  Age: 56 Year
  Sex: Male

DRUGS (10)
  1. CLARITHROMYCIN [Suspect]
     Active Substance: CLARITHROMYCIN
     Indication: Atypical mycobacterial lower respiratory tract infection
     Dosage: UNK
     Route: 065
  2. PIPERACILLIN SODIUM\TAZOBACTAM SODIUM [Suspect]
     Active Substance: PIPERACILLIN SODIUM\TAZOBACTAM SODIUM
     Indication: Pneumonia
     Dosage: UNK
     Route: 065
  3. PIPERACILLIN SODIUM\TAZOBACTAM SODIUM [Suspect]
     Active Substance: PIPERACILLIN SODIUM\TAZOBACTAM SODIUM
     Indication: Lung abscess
  4. RIFAMPIN [Suspect]
     Active Substance: RIFAMPIN
     Indication: Pneumonia
     Dosage: UNK
     Route: 065
  5. ETHAMBUTOL HYDROCHLORIDE [Suspect]
     Active Substance: ETHAMBUTOL HYDROCHLORIDE
     Indication: Pneumonia
     Dosage: UNK
     Route: 065
  6. MOXIFLOXACIN [Suspect]
     Active Substance: MOXIFLOXACIN
     Indication: Pneumonia
     Dosage: UNK
     Route: 065
  7. RIFABUTIN [Suspect]
     Active Substance: RIFABUTIN
     Indication: Pneumonia
     Dosage: UNK
     Route: 065
  8. ISONIAZID [Suspect]
     Active Substance: ISONIAZID
     Indication: Pneumonia
     Dosage: UNK
     Route: 065
  9. CEFEPIME [Suspect]
     Active Substance: CEFEPIME HYDROCHLORIDE
     Indication: Pneumonia
     Dosage: UNK
     Route: 065
  10. CEFEPIME [Suspect]
     Active Substance: CEFEPIME HYDROCHLORIDE
     Indication: Lung abscess

REACTIONS (1)
  - Drug ineffective [Unknown]
